FAERS Safety Report 12797268 (Version 5)
Quarter: 2025Q3

REPORT INFORMATION
  Report Type: Other
  Country: CA (occurrence: CA)
  Receive Date: 20160930
  Receipt Date: 20250703
  Transmission Date: 20251020
  Serious: Yes (Death, Other)
  Sender: APOTEX
  Company Number: CA-APOTEX-2016AP012414

PATIENT
  Sex: Male

DRUGS (11)
  1. ACETAMINOPHEN [Suspect]
     Active Substance: ACETAMINOPHEN
     Indication: Product used for unknown indication
     Route: 065
  2. DUTASTERIDE [Suspect]
     Active Substance: DUTASTERIDE
     Indication: Product used for unknown indication
     Route: 065
  3. KETOPROFEN [Suspect]
     Active Substance: KETOPROFEN
     Indication: Product used for unknown indication
     Route: 065
  4. PANTOPRAZOLE [Suspect]
     Active Substance: PANTOPRAZOLE
     Indication: Product used for unknown indication
     Route: 065
  5. PREGABALIN [Suspect]
     Active Substance: PREGABALIN
     Indication: Product used for unknown indication
     Route: 065
  6. TRIAMCINOLONE [Suspect]
     Active Substance: TRIAMCINOLONE
     Indication: Product used for unknown indication
     Route: 065
  7. SYMBICORT [Suspect]
     Active Substance: BUDESONIDE\FORMOTEROL FUMARATE DIHYDRATE
     Indication: Product used for unknown indication
  8. FORMOTEROL FUMARATE [Suspect]
     Active Substance: FORMOTEROL FUMARATE
     Indication: Product used for unknown indication
  9. BUDESONIDE [Suspect]
     Active Substance: BUDESONIDE
     Indication: Product used for unknown indication
     Route: 065
  10. SPIRIVA [Concomitant]
     Active Substance: TIOTROPIUM BROMIDE MONOHYDRATE
     Indication: Product used for unknown indication
     Route: 065
  11. FORMOTEROL FUMARATE\MOMETASONE FUROATE [Suspect]
     Active Substance: FORMOTEROL FUMARATE\MOMETASONE FUROATE
     Indication: Product used for unknown indication

REACTIONS (3)
  - Myoclonic epilepsy [Fatal]
  - Brain injury [Fatal]
  - Pallor [Fatal]
